FAERS Safety Report 8434774-X (Version None)
Quarter: 2012Q2

REPORT INFORMATION
  Report Type: 
  Country: None (occurrence: None)
  Receive Date: 20120614
  Receipt Date: 20120604
  Transmission Date: 20120825
  Serious: Yes (Hospitalization)
  Sender: FDA-Public Use
  Company Number: IT-JNJFOC-20120511810

PATIENT
  Age: 46 Year
  Sex: Male

DRUGS (10)
  1. PREDNISONE TAB [Suspect]
     Route: 048
     Dates: start: 20120123
  2. LANSOPRAZOLE [Concomitant]
     Route: 048
     Dates: start: 20080417
  3. REMICADE [Suspect]
     Dosage: ADMINISTERED AT WEEK 0, WEEK 6
     Route: 042
     Dates: start: 20110914
  4. PREDNISONE TAB [Suspect]
     Indication: PSORIATIC ARTHROPATHY
     Route: 048
     Dates: start: 20111222, end: 20120122
  5. FOLIC ACID [Concomitant]
     Route: 048
     Dates: start: 20080417
  6. REMICADE [Suspect]
     Indication: PSORIATIC ARTHROPATHY
     Dosage: ADMINISTERED AT WEEK 8; TOTAL OF 4 INFUSIONS ADMINISTERED
     Route: 042
     Dates: end: 20111221
  7. PREDNISONE TAB [Suspect]
     Route: 048
     Dates: start: 20111222, end: 20120122
  8. MOBIC [Concomitant]
     Route: 048
     Dates: start: 20080417
  9. METHOTREXATE [Suspect]
     Indication: PSORIATIC ARTHROPATHY
     Dates: start: 20080101
  10. PREDNISONE TAB [Suspect]
     Route: 048
     Dates: start: 20100520, end: 20111221

REACTIONS (1)
  - BLADDER TRANSITIONAL CELL CARCINOMA [None]
